FAERS Safety Report 10652815 (Version 6)
Quarter: 2015Q4

REPORT INFORMATION
  Report Type: Spontaneous
  Country: US (occurrence: US)
  Receive Date: 20141215
  Receipt Date: 20151102
  Transmission Date: 20160304
  Serious: Yes (Other)
  Sender: FDA-Public Use
  Company Number: US-ELI_LILLY_AND_COMPANY-US201412001131

PATIENT
  Age: 27 Year
  Sex: Female

DRUGS (23)
  1. CYMBALTA [Suspect]
     Active Substance: DULOXETINE HYDROCHLORIDE
     Indication: ANXIETY
     Dosage: 60 MG, EACH MORNING
     Route: 065
     Dates: start: 20081126
  2. CYMBALTA [Suspect]
     Active Substance: DULOXETINE HYDROCHLORIDE
     Dosage: 60 MG, UNKNOWN
     Route: 065
     Dates: start: 20090428
  3. CYMBALTA [Suspect]
     Active Substance: DULOXETINE HYDROCHLORIDE
     Dosage: 60 MG, UNKNOWN
     Route: 065
     Dates: start: 20091023
  4. REMERON [Concomitant]
     Active Substance: MIRTAZAPINE
     Indication: PRODUCT USED FOR UNKNOWN INDICATION
     Dosage: 7.5 MG, UNKNOWN
     Route: 048
     Dates: start: 20090918
  5. SEROQUEL [Concomitant]
     Active Substance: QUETIAPINE FUMARATE
     Dosage: 600 MG, UNKNOWN
     Route: 065
     Dates: start: 20111230
  6. VISTARIL [Concomitant]
     Active Substance: HYDROXYZINE PAMOATE
     Dosage: 50 MG, BID
     Route: 048
     Dates: start: 20090428
  7. COGENTIN [Concomitant]
     Active Substance: BENZTROPINE MESYLATE
     Indication: PRODUCT USED FOR UNKNOWN INDICATION
     Dosage: 1 MG, QD
     Dates: start: 20120406
  8. CYMBALTA [Suspect]
     Active Substance: DULOXETINE HYDROCHLORIDE
     Dosage: 60 MG, BID
     Route: 048
     Dates: start: 20120406
  9. LEXAPRO [Concomitant]
     Active Substance: ESCITALOPRAM OXALATE
     Dosage: 20 MG, QD
     Route: 065
  10. SEROQUEL [Concomitant]
     Active Substance: QUETIAPINE FUMARATE
     Indication: PRODUCT USED FOR UNKNOWN INDICATION
     Dosage: 100 MG, UNKNOWN
     Route: 048
     Dates: start: 20100520
  11. VISTARIL [Concomitant]
     Active Substance: HYDROXYZINE PAMOATE
     Indication: ANXIETY
     Dosage: 50 MG, BID
     Route: 065
  12. COGENTIN [Concomitant]
     Active Substance: BENZTROPINE MESYLATE
     Dosage: 1 MG, BID
     Route: 048
     Dates: start: 20120926
  13. ABILIFY [Concomitant]
     Active Substance: ARIPIPRAZOLE
     Indication: DEPRESSION
     Dosage: 10 MG, UNKNOWN
     Route: 065
     Dates: start: 20090428
  14. ZYPREXA [Concomitant]
     Active Substance: OLANZAPINE
     Indication: PRODUCT USED FOR UNKNOWN INDICATION
     Dosage: 10 MG, EACH EVENING
     Route: 048
  15. CYMBALTA [Suspect]
     Active Substance: DULOXETINE HYDROCHLORIDE
     Indication: DEPRESSION
     Dosage: 30 MG, EACH MORNING
     Route: 065
     Dates: start: 20081119, end: 20081126
  16. CYMBALTA [Suspect]
     Active Substance: DULOXETINE HYDROCHLORIDE
     Dosage: 120 MG, EACH MORNING
     Route: 048
     Dates: start: 20100520
  17. VISTARIL [Concomitant]
     Active Substance: HYDROXYZINE PAMOATE
     Dosage: 50 MG, BID
     Route: 048
     Dates: start: 20100520
  18. VISTARIL [Concomitant]
     Active Substance: HYDROXYZINE PAMOATE
     Dosage: 25 MG, QD
     Dates: start: 20120926
  19. ABILIFY [Concomitant]
     Active Substance: ARIPIPRAZOLE
     Dosage: 5 MG, UNKNOWN
     Route: 048
     Dates: start: 20090918
  20. CYMBALTA [Suspect]
     Active Substance: DULOXETINE HYDROCHLORIDE
     Dosage: 60 MG, BID
     Route: 065
     Dates: start: 20111230
  21. SEROQUEL [Concomitant]
     Active Substance: QUETIAPINE FUMARATE
     Dosage: 50 MG, UNKNOWN
     Route: 065
     Dates: start: 20120926
  22. CYMBALTA [Suspect]
     Active Substance: DULOXETINE HYDROCHLORIDE
     Dosage: 90 MG, EACH MORNING
     Route: 048
     Dates: start: 20090918
  23. COGENTIN [Concomitant]
     Active Substance: BENZTROPINE MESYLATE
     Dosage: 1 MG, BID
     Route: 048
     Dates: start: 20120406

REACTIONS (24)
  - Intentional self-injury [Recovered/Resolved]
  - Depression [Recovered/Resolved]
  - Asocial behaviour [Recovered/Resolved]
  - Paranoia [Recovered/Resolved]
  - Irritability [Recovered/Resolved]
  - Nausea [Recovered/Resolved]
  - Paraesthesia [Recovered/Resolved]
  - Vision blurred [Recovered/Resolved]
  - Initial insomnia [Recovered/Resolved]
  - Drug ineffective [Recovered/Resolved]
  - Hallucinations, mixed [Recovered/Resolved]
  - Pain [Recovered/Resolved]
  - Withdrawal syndrome [Recovered/Resolved]
  - Asthenia [Recovered/Resolved]
  - Decreased appetite [Recovered/Resolved]
  - Panic attack [Recovered/Resolved]
  - Asthenia [Recovered/Resolved]
  - Initial insomnia [Recovered/Resolved]
  - Suicidal ideation [Recovered/Resolved]
  - Hallucination, auditory [Recovered/Resolved]
  - Apathy [Recovered/Resolved]
  - Somnolence [Recovered/Resolved]
  - Apathy [Recovered/Resolved]
  - Dizziness [Recovered/Resolved]

NARRATIVE: CASE EVENT DATE: 201102
